FAERS Safety Report 5053051-0 (Version None)
Quarter: 2006Q3

REPORT INFORMATION
  Report Type: 
  Country: None (occurrence: None)
  Receive Date: 20060717
  Receipt Date: 20060710
  Transmission Date: 20061208
  Serious: Yes (Other)
  Sender: FDA-Public Use
  Company Number: US-BRISTOL-MYERS SQUIBB COMPANY-13437728

PATIENT
  Sex: Female

DRUGS (4)
  1. ESTRACE [Suspect]
     Indication: HORMONE THERAPY
  2. ESTRADIOL [Suspect]
     Indication: HORMONE THERAPY
  3. PROVERA [Suspect]
     Indication: HORMONE THERAPY
  4. PREMARIN [Suspect]
     Indication: HORMONE THERAPY

REACTIONS (1)
  - BREAST CANCER [None]
